FAERS Safety Report 25394536 (Version 2)
Quarter: 2025Q2

REPORT INFORMATION
  Report Type: Spontaneous
  Country: IT (occurrence: IT)
  Receive Date: 20250604
  Receipt Date: 20250606
  Transmission Date: 20250717
  Serious: Yes (Death, Other)
  Sender: EXELIXIS
  Company Number: IT-IPSEN Group, Research and Development-2025-12700

PATIENT
  Age: 78 Year
  Sex: Male

DRUGS (4)
  1. CABOMETYX [Suspect]
     Active Substance: CABOZANTINIB S-MALATE
     Indication: Clear cell renal cell carcinoma
     Dosage: 40 MG, QD
     Route: 065
  2. CABOMETYX [Suspect]
     Active Substance: CABOZANTINIB S-MALATE
     Route: 065
  3. CABOMETYX [Suspect]
     Active Substance: CABOZANTINIB S-MALATE
     Route: 065
  4. CABOMETYX [Suspect]
     Active Substance: CABOZANTINIB S-MALATE
     Dosage: 60 MG, QD
     Route: 065

REACTIONS (9)
  - Ulcerative keratitis [Recovered/Resolved]
  - Ulcerative keratitis [Unknown]
  - Corneal perforation [Unknown]
  - Malignant neoplasm progression [Fatal]
  - Asthenia [Unknown]
  - Diarrhoea [Unknown]
  - Dysgeusia [Unknown]
  - Decreased appetite [Unknown]
  - Off label use [Unknown]

NARRATIVE: CASE EVENT DATE: 20241201
